FAERS Safety Report 9164969 (Version 2)
Quarter: 2013Q1

REPORT INFORMATION
  Report Type: Report from Study
  Country: US (occurrence: US)
  Receive Date: 20130315
  Receipt Date: 20130318
  Transmission Date: 20140127
  Serious: Yes (Hospitalization)
  Sender: FDA-Public Use
  Company Number: US-ABBOTT-13P-163-1060094-00

PATIENT
  Age: 34 None
  Sex: Female
  Weight: 102.15 kg

DRUGS (12)
  1. HUMIRA [Suspect]
     Indication: PSORIASIS
     Route: 050
     Dates: start: 20120710
  2. PRENATAL VITAMINS [Concomitant]
     Indication: PRODUCT USED FOR UNKNOWN INDICATION
     Route: 048
     Dates: start: 20120810
  3. MULTIVITAMIN [Concomitant]
     Indication: PRODUCT USED FOR UNKNOWN INDICATION
     Route: 048
     Dates: start: 20120710, end: 20120809
  4. CALCIUM [Concomitant]
     Indication: PRODUCT USED FOR UNKNOWN INDICATION
     Route: 048
     Dates: start: 20120901
  5. B COMPLEX [Concomitant]
     Indication: PRODUCT USED FOR UNKNOWN INDICATION
     Dosage: 1 PILL ONCE A DAY
     Route: 048
     Dates: start: 20120901
  6. IRON [Concomitant]
     Indication: PRODUCT USED FOR UNKNOWN INDICATION
     Route: 048
     Dates: start: 20121130
  7. INFLUENZA VACCINE [Concomitant]
     Indication: PRODUCT USED FOR UNKNOWN INDICATION
     Dosage: 1 SHOT ONCE A DAY
     Route: 050
     Dates: start: 20120910, end: 20120910
  8. CAFFEINE [Concomitant]
     Indication: PRODUCT USED FOR UNKNOWN INDICATION
     Dosage: 100 MG 2.5 TIMES A WEEK
     Route: 048
     Dates: start: 20121210
  9. METHYLDOPA [Concomitant]
     Indication: BLOOD PRESSURE
     Route: 048
     Dates: start: 20120917
  10. TDAP VACCINE (ADULT) [Concomitant]
     Indication: PRODUCT USED FOR UNKNOWN INDICATION
     Dosage: 1 SHOT ONCE A DAY
     Route: 050
     Dates: start: 20130222, end: 20130222
  11. CITRUCEL [Concomitant]
     Indication: SUPPLEMENTATION THERAPY
     Route: 048
     Dates: start: 20120807
  12. PRILOSEC [Concomitant]
     Indication: PRODUCT USED FOR UNKNOWN INDICATION
     Dosage: 1 PILL ONCE A DAY
     Route: 048
     Dates: start: 20130107, end: 20130121

REACTIONS (12)
  - Road traffic accident [Recovered/Resolved]
  - Depression [Unknown]
  - Hepatic steatosis [Unknown]
  - Anxiety [Unknown]
  - Back pain [Unknown]
  - Nausea [Unknown]
  - Headache [Unknown]
  - Dyspepsia [Unknown]
  - Foot fracture [Unknown]
  - Hypersensitivity [Unknown]
  - Gastrooesophageal reflux disease [Unknown]
  - Glucose tolerance test abnormal [Unknown]
